FAERS Safety Report 6402673-0 (Version None)
Quarter: 2009Q4

REPORT INFORMATION
  Report Type: 
  Country: None (occurrence: None)
  Receive Date: 20091009
  Receipt Date: 20090930
  Transmission Date: 20100525
  Serious: Yes (Other)
  Sender: FDA-Public Use
  Company Number: ADR34172009

PATIENT
  Sex: Female

DRUGS (2)
  1. CIPROFLOXACIN [Suspect]
     Dosage: 250 MG
  2. IBUPROFEN [Concomitant]

REACTIONS (5)
  - ABNORMAL BEHAVIOUR [None]
  - HANGOVER [None]
  - HEADACHE [None]
  - MALAISE [None]
  - THINKING ABNORMAL [None]
